FAERS Safety Report 5081306-2 (Version None)
Quarter: 2006Q3

REPORT INFORMATION
  Report Type: 
  Country: None (occurrence: None)
  Receive Date: 20060810
  Receipt Date: 20060803
  Transmission Date: 20061208
  Serious: Yes (Hospitalization)
  Sender: FDA-Public Use
  Company Number: APP200600220

PATIENT
  Age: 27 Year
  Sex: Male
  Weight: 86.9 kg

DRUGS (8)
  1. IFOSFAMIDE [Suspect]
     Indication: TESTIS CANCER
     Dosage: 4200 MG (1 IN 1 D), INTRAVENOUS
     Route: 042
     Dates: start: 20060624
  2. IFOSFAMIDE [Suspect]
     Indication: TESTIS CANCER
     Dosage: 4200 MG (1 IN 1 D), INTRAVENOUS
     Route: 042
     Dates: start: 20060626
  3. BLEOMYCIN [Suspect]
     Indication: TESTIS CANCER
     Dosage: 25 USP UNITS (25 USP UNITS, 1 IN 1 D)
     Route: 042
     Dates: start: 20060624, end: 20060627
  4. MAGNESIUM OXIDE (MAGNESIUM OXIDE) [Concomitant]
  5. ENOXAPARIN (ENOXAPARIN) [Concomitant]
  6. ZOFRAN [Concomitant]
  7. PEPCID [Concomitant]
  8. EFFEXOR XR [Concomitant]

REACTIONS (10)
  - ANAEMIA [None]
  - ASTHENIA [None]
  - DYSPNOEA [None]
  - FEBRILE NEUTROPENIA [None]
  - MALAISE [None]
  - NAUSEA [None]
  - PLATELET COUNT DECREASED [None]
  - TACHYCARDIA [None]
  - TACHYPNOEA [None]
  - VOMITING [None]
